FAERS Safety Report 9111697 (Version 1)
Quarter: 2013Q1

REPORT INFORMATION
  Report Type: Spontaneous
  Country: US (occurrence: US)
  Receive Date: 20130219
  Receipt Date: 20130219
  Transmission Date: 20140127
  Serious: No
  Sender: FDA-Public Use
  Company Number: US-BRISTOL-MYERS SQUIBB COMPANY-16555690

PATIENT
  Age: 17 Year
  Sex: Female
  Weight: 72.56 kg

DRUGS (4)
  1. ORENCIA [Suspect]
     Route: 042
     Dates: start: 20120425
  2. LEXAPRO [Concomitant]
  3. ARAVA [Concomitant]
  4. DICLOFENAC [Concomitant]

REACTIONS (6)
  - Myalgia [Not Recovered/Not Resolved]
  - Abdominal pain upper [Unknown]
  - Fatigue [Unknown]
  - Decreased appetite [Unknown]
  - Injection site erythema [Unknown]
  - Stomatitis [Unknown]
